FAERS Safety Report 7725065-0 (Version None)
Quarter: 2011Q3

REPORT INFORMATION
  Report Type: 
  Country: None (occurrence: None)
  Receive Date: 20110901
  Receipt Date: 20110824
  Transmission Date: 20111222
  Serious: Yes (Other)
  Sender: FDA-Public Use
  Company Number: BR-SANOFI-AVENTIS-2011SA054888

PATIENT
  Sex: Male
  Weight: 62 kg

DRUGS (4)
  1. OPTIPEN [Suspect]
  2. LANTUS [Suspect]
     Indication: TYPE 1 DIABETES MELLITUS
     Route: 058
  3. HUMALOG [Concomitant]
  4. VITALUX PLUS [Concomitant]
     Route: 048

REACTIONS (8)
  - HYPOGLYCAEMIC UNCONSCIOUSNESS [None]
  - FEELING ABNORMAL [None]
  - VISUAL IMPAIRMENT [None]
  - HYPERGLYCAEMIA [None]
  - HYPOGLYCAEMIA [None]
  - MALAISE [None]
  - VISION BLURRED [None]
  - HYPERHIDROSIS [None]
